FAERS Safety Report 18043851 (Version 2)
Quarter: 2021Q2

REPORT INFORMATION
  Report Type: Spontaneous
  Country: JO (occurrence: JO)
  Receive Date: 20200720
  Receipt Date: 20210419
  Transmission Date: 20210717
  Serious: Yes (Life-Threatening, Hospitalization, Other)
  Sender: FDA-Public Use
  Company Number: JO-PFIZER INC-2020272996

PATIENT
  Age: 57 Year
  Sex: Male

DRUGS (7)
  1. CYCLOPHOSPHAMIDE. [Suspect]
     Active Substance: CYCLOPHOSPHAMIDE
     Indication: THYMOMA
  2. CISPLATIN. [Suspect]
     Active Substance: CISPLATIN
     Indication: THYMOMA
  3. CYCLOPHOSPHAMIDE. [Suspect]
     Active Substance: CYCLOPHOSPHAMIDE
     Indication: NEOADJUVANT THERAPY
     Dosage: UNK, CYCLIC (TWO CYCLES)
  4. CISPLATIN. [Suspect]
     Active Substance: CISPLATIN
     Indication: NEOADJUVANT THERAPY
     Dosage: UNK, CYCLIC (TWO CYCLES)
  5. SODIUM CHLORIDE. [Concomitant]
     Active Substance: SODIUM CHLORIDE
     Dosage: UNK
     Route: 042
  6. DOXORUBICIN HCL [Suspect]
     Active Substance: DOXORUBICIN HYDROCHLORIDE
     Indication: THYMOMA
     Dosage: UNK, CYCLIC (TWO CYCLES)
  7. DOXORUBICIN HCL [Suspect]
     Active Substance: DOXORUBICIN HYDROCHLORIDE
     Indication: CHEMOTHERAPY

REACTIONS (1)
  - Myocardial rupture [Recovered/Resolved]
